FAERS Safety Report 16299686 (Version 1)
Quarter: 2019Q2

REPORT INFORMATION
  Report Type: Spontaneous
  Country: US (occurrence: US)
  Receive Date: 20190405
  Receipt Date: 20190405
  Transmission Date: 20190711
  Serious: No
  Sender: FDA-Public Use
  Company Number: None

PATIENT
  Sex: Female

DRUGS (1)
  1. MEROPENEM 1 GM FRESENIUS [Suspect]
     Active Substance: MEROPENEM
     Indication: OSTEOMYELITIS
     Route: 042
     Dates: start: 20190220

REACTIONS (3)
  - Rash erythematous [None]
  - Liver function test increased [None]
  - Rash pruritic [None]
